FAERS Safety Report 6700177-9 (Version None)
Quarter: 2010Q2

REPORT INFORMATION
  Report Type: 
  Country: None (occurrence: None)
  Receive Date: 20100428
  Receipt Date: 20100421
  Transmission Date: 20101027
  Serious: Yes (Hospitalization)
  Sender: FDA-Public Use
  Company Number: CH-ABBOTT-09P-151-0608603-00

PATIENT
  Age: 61 Year
  Sex: Male
  Weight: 41 kg

DRUGS (18)
  1. NORVIR [Interacting]
     Indication: HIV INFECTION
     Route: 048
     Dates: start: 20060808, end: 20091001
  2. NORVIR [Interacting]
     Indication: INFECTION
     Route: 048
     Dates: start: 20091001
  3. VIREAD [Interacting]
     Indication: HIV INFECTION
     Route: 048
     Dates: start: 20060808, end: 20070704
  4. VIREAD [Interacting]
     Indication: INFECTION
  5. EMTRICITABINE/TENOFOVIR DISOPROXIL FUMARATE [Interacting]
     Indication: HIV INFECTION
     Route: 048
     Dates: start: 20070704, end: 20090924
  6. EMTRICITABINE/TENOFOVIR DISOPROXIL FUMARATE [Interacting]
     Indication: INFECTION
     Route: 048
     Dates: start: 20090925, end: 20090930
  7. REYATAZ [Interacting]
     Indication: HIV INFECTION
     Route: 048
     Dates: start: 20060808, end: 20091001
  8. REYATAZ [Interacting]
     Indication: INFECTION
     Route: 048
     Dates: start: 20091001
  9. INVIRASE [Suspect]
     Indication: HIV INFECTION
     Route: 048
     Dates: start: 20060808, end: 20091001
  10. INVIRASE [Suspect]
     Indication: INFECTION
     Route: 048
     Dates: start: 20091001
  11. LAMIVUDINE (EPIVIR HBV) [Suspect]
     Indication: HIV INFECTION
     Route: 048
     Dates: start: 20091001
  12. LAMIVUDINE (EPIVIR HBV) [Suspect]
     Indication: INFECTION
     Route: 048
     Dates: start: 20091001
  13. LAMIVUDINE (EPIVIR HBV) [Suspect]
     Dates: start: 20060101
  14. ZIAGEN [Suspect]
     Indication: HIV INFECTION
     Dates: start: 20091001, end: 20091010
  15. ZIAGEN [Suspect]
     Indication: INFECTION
  16. EFAVIRENZ [Suspect]
     Indication: HIV INFECTION
     Route: 048
     Dates: start: 20091016
  17. EFAVIRENZ [Suspect]
     Indication: INFECTION
  18. SLEEPING PILL BOUGHT IN THAILAND (SUBSTANCE NOT SPECIFIED) [Concomitant]
     Indication: DRUG USE FOR UNKNOWN INDICATION

REACTIONS (8)
  - DRUG INTERACTION [None]
  - FANCONI SYNDROME [None]
  - GLYCOSURIA [None]
  - HYPOKALAEMIA [None]
  - HYPOPHOSPHATAEMIA [None]
  - NEPHROCALCINOSIS [None]
  - PROTEINURIA [None]
  - RENAL FAILURE CHRONIC [None]
